FAERS Safety Report 25432327 (Version 3)
Quarter: 2025Q3

REPORT INFORMATION
  Report Type: Spontaneous
  Country: CA (occurrence: CA)
  Receive Date: 20250613
  Receipt Date: 20250903
  Transmission Date: 20251020
  Serious: Yes (Hospitalization)
  Sender: SANDOZ
  Company Number: CA-002147023-NVSC2025CA090720

PATIENT
  Age: 21 Month
  Sex: Male
  Weight: 11.6 kg

DRUGS (8)
  1. RUXOLITINIB [Suspect]
     Active Substance: RUXOLITINIB
     Indication: Chronic graft versus host disease
     Route: 048
     Dates: start: 20250512
  2. RUXOLITINIB [Suspect]
     Active Substance: RUXOLITINIB
     Indication: Wiskott-Aldrich syndrome
     Dosage: 4 MG, BID (STRENGTH-5MG/ML)
     Route: 048
     Dates: start: 20250513
  3. RUXOLITINIB [Suspect]
     Active Substance: RUXOLITINIB
     Indication: Chronic graft versus host disease in skin
  4. TACROLIMUS [Suspect]
     Active Substance: TACROLIMUS
     Dosage: 1 MG, BID
     Route: 048
     Dates: start: 20250611
  5. TACROLIMUS [Suspect]
     Active Substance: TACROLIMUS
     Dosage: 1.4 MG, BID (FOR MONTHS)
     Route: 048
  6. TACROLIMUS [Suspect]
     Active Substance: TACROLIMUS
     Indication: Graft versus host disease
     Route: 065
  7. TACROLIMUS [Suspect]
     Active Substance: TACROLIMUS
     Route: 048
     Dates: start: 20250620, end: 20250711
  8. PREDNISOLONE [Concomitant]
     Active Substance: PREDNISOLONE
     Indication: Product used for unknown indication
     Route: 065
     Dates: end: 20250704

REACTIONS (12)
  - Lethargy [Unknown]
  - Pneumonia adenoviral [Recovered/Resolved]
  - Vomiting [Unknown]
  - Pyrexia [Recovered/Resolved]
  - Enterovirus infection [Recovered/Resolved]
  - Rhinovirus infection [Recovered/Resolved]
  - Rhinorrhoea [Unknown]
  - Small airways disease [Unknown]
  - Cough [Not Recovered/Not Resolved]
  - Parainfluenzae virus infection [Recovered/Resolved]
  - Upper respiratory tract infection [Unknown]
  - Product use complaint [Unknown]

NARRATIVE: CASE EVENT DATE: 20250612
